FAERS Safety Report 13955393 (Version 2)
Quarter: 2017Q4

REPORT INFORMATION
  Report Type: Spontaneous
  Country: JP (occurrence: JP)
  Receive Date: 20170911
  Receipt Date: 20171003
  Transmission Date: 20180320
  Serious: Yes (Hospitalization)
  Sender: FDA-Public Use
  Company Number: JP-SHIONOGI, INC-2017000495

PATIENT
  Age: 74 Year
  Sex: Female

DRUGS (4)
  1. SYMPROIC [Suspect]
     Active Substance: NALDEMEDINE
     Dosage: UNK
     Route: 048
  2. MAGMITT [Concomitant]
     Active Substance: MAGNESIUM OXIDE
     Indication: CONSTIPATION
     Dosage: UNK
     Route: 065
  3. SYMPROIC [Suspect]
     Active Substance: NALDEMEDINE
     Indication: CONSTIPATION
     Dosage: UNK
     Route: 048
  4. OPIOIDS [Concomitant]
     Active Substance: UNSPECIFIED INGREDIENT
     Dosage: UNK
     Route: 065

REACTIONS (2)
  - Gastrointestinal perforation [Unknown]
  - Diarrhoea [Recovered/Resolved]
